FAERS Safety Report 9519101 (Version 1)
Quarter: 2013Q1

REPORT INFORMATION
  Report Type: Spontaneous
  Country: US (occurrence: None)
  Receive Date: 20130305
  Receipt Date: 20130305
  Transmission Date: 20140127
  Serious: Yes (Hospitalization)
  Sender: FDA-Public Use
  Company Number: 163-21880-12010593

PATIENT
  Age: 70 Year
  Sex: Male
  Weight: 86.18 kg

DRUGS (16)
  1. REVLIMID [Suspect]
     Indication: PLASMA CELL MYELOMA
     Dosage: 5 MG, 1 IN 1 D, PO
     Route: 048
     Dates: start: 201011
  2. ATIVAN (LORAZEPAM) (UNKNOWN) [Concomitant]
  3. BACLOFEN (BACLOFEN) (UNKNOWN) [Concomitant]
  4. CALCIUM (CALCIUM) (UNKNOWN) [Concomitant]
  5. CARVEDILOL (CARVEDILOL) (UNKNOWN) [Concomitant]
  6. COUMADIN (WARFARIN SODIUM) (UNKNOWN) [Concomitant]
  7. DECADRON [Concomitant]
  8. FISH OIL (FISH OIL) (UNKNOWN) [Concomitant]
  9. FOLIC ACID (FOLIC ACID) (UNKNOWN) [Concomitant]
  10. LEVOTROSIN (LEVOTHYROXINE SODIUM) (UNKNOWN) [Concomitant]
  11. LISINOPRIL (LISINOPRIL) (UNKNOWN) [Concomitant]
  12. PANTOPRAZOLE [Concomitant]
  13. COMPAZINE (PROCHLORPERZINE EDISYLATE) (UNKNOWN) [Concomitant]
  14. VITAMIN B12 (CYANOCOBALAMIN) (UNKNOWN) [Concomitant]
  15. VITAMIN D3 (COLECALCIFEROL) (UNKNOWN) [Concomitant]
  16. SIMVASTATIN [Concomitant]

REACTIONS (5)
  - Disorientation [None]
  - Thrombosis [None]
  - Asthenia [None]
  - Gait disturbance [None]
  - Nodule [None]
